FAERS Safety Report 21951865 (Version 3)
Quarter: 2023Q2

REPORT INFORMATION
  Report Type: Spontaneous
  Country: US (occurrence: US)
  Receive Date: 20230203
  Receipt Date: 20230405
  Transmission Date: 20230722
  Serious: No
  Sender: FDA-Public Use
  Company Number: US-PFIZER INC-202300043069

PATIENT
  Age: 87 Year
  Sex: Female
  Weight: 48.53 kg

DRUGS (1)
  1. IBRANCE [Suspect]
     Active Substance: PALBOCICLIB
     Indication: Breast cancer metastatic
     Dosage: 75 MG, CYCLIC, (ONCE A DAY FOR 21 DAYS, OFF SEVEN DAYS)
     Dates: start: 202106, end: 20230123

REACTIONS (1)
  - Neoplasm progression [Not Recovered/Not Resolved]
